FAERS Safety Report 13711470 (Version 3)
Quarter: 2017Q3

REPORT INFORMATION
  Report Type: Report from Study
  Country: US (occurrence: US)
  Receive Date: 20170703
  Receipt Date: 20170719
  Transmission Date: 20171127
  Serious: Yes (Death, Hospitalization, Other)
  Sender: FDA-Public Use
  Company Number: US-GILEAD-2017-0281325

PATIENT
  Age: 51 Year
  Sex: Male
  Weight: 109.3 kg

DRUGS (11)
  1. AMBRISENTAN [Suspect]
     Active Substance: AMBRISENTAN
     Indication: PULMONARY HYPERTENSION
     Dosage: 5 MG, QD
     Route: 048
     Dates: start: 20170606
  2. ADCIRCA [Concomitant]
     Active Substance: TADALAFIL
  3. AMBRISENTAN [Suspect]
     Active Substance: AMBRISENTAN
     Indication: SLEEP APNOEA SYNDROME
  4. PREDNISONE. [Concomitant]
     Active Substance: PREDNISONE
  5. METOPROLOL TARTRATE. [Concomitant]
     Active Substance: METOPROLOL TARTRATE
  6. DIGOXIN. [Concomitant]
     Active Substance: DIGOXIN
  7. LOSARTAN. [Concomitant]
     Active Substance: LOSARTAN
  8. FENOFIBRATE. [Concomitant]
     Active Substance: FENOFIBRATE
  9. AMBRISENTAN [Suspect]
     Active Substance: AMBRISENTAN
     Indication: CHRONIC OBSTRUCTIVE PULMONARY DISEASE
  10. LIPITOR [Concomitant]
     Active Substance: ATORVASTATIN CALCIUM
  11. BUMEX [Concomitant]
     Active Substance: BUMETANIDE

REACTIONS (4)
  - Cardiac arrest [Fatal]
  - Brain death [Fatal]
  - Life support [Unknown]
  - Dyspnoea [Unknown]

NARRATIVE: CASE EVENT DATE: 20170608
